FAERS Safety Report 21793086 (Version 6)
Quarter: 2023Q1

REPORT INFORMATION
  Report Type: Spontaneous
  Country: CA (occurrence: CA)
  Receive Date: 20221229
  Receipt Date: 20230217
  Transmission Date: 20230418
  Serious: No
  Sender: FDA-Public Use
  Company Number: CA-PFIZER INC-PV202200131652

PATIENT
  Sex: Male

DRUGS (1)
  1. FRAGMIN [Suspect]
     Active Substance: DALTEPARIN SODIUM
     Dosage: 0.2 ML (5000 UI) ONCE DAILY FOR 2 WEEKS
     Route: 058
     Dates: start: 20221215, end: 20221228

REACTIONS (1)
  - Needle issue [Unknown]
